FAERS Safety Report 19704287 (Version 1)
Quarter: 2021Q3

REPORT INFORMATION
  Report Type: Spontaneous
  Country: US (occurrence: US)
  Receive Date: 20210813
  Receipt Date: 20210813
  Transmission Date: 20211014
  Serious: No
  Sender: FDA-Public Use
  Company Number: None

PATIENT
  Age: 56 Year
  Sex: Male

DRUGS (1)
  1. REVLIMID [Suspect]
     Active Substance: LENALIDOMIDE
     Indication: PLASMA CELL MYELOMA
     Route: 048
     Dates: start: 20201030

REACTIONS (6)
  - Asthenia [None]
  - Fatigue [None]
  - Myalgia [None]
  - Therapy interrupted [None]
  - Oedema peripheral [None]
  - Muscle spasms [None]

NARRATIVE: CASE EVENT DATE: 20210728
